FAERS Safety Report 23408194 (Version 1)
Quarter: 2024Q1

REPORT INFORMATION
  Report Type: Spontaneous
  Country: BR (occurrence: BR)
  Receive Date: 20240117
  Receipt Date: 20240117
  Transmission Date: 20240410
  Serious: Yes (Hospitalization, Other)
  Sender: FDA-Public Use
  Company Number: BR-BAXTER-2024BAX010693

PATIENT
  Age: 19 Year
  Sex: Female
  Weight: 54 kg

DRUGS (2)
  1. IRON [Suspect]
     Active Substance: IRON
     Indication: Anaemia
     Dosage: 5 AMPOULES (500 MG) DILUTED IN 500 ML OF 0.9% SODIUM CHLORIDE, ADMINISTERED VIA INFUSION PUMP AT A S
     Route: 042
     Dates: start: 20231222, end: 20231222
  2. SODIUM CHLORIDE [Suspect]
     Active Substance: SODIUM CHLORIDE
     Indication: Medication dilution
     Dosage: 500 ML USED TO DILUTE 5 AMPOULES (500 MG) OF SUCROFER, ADMINISTERED VIA INFUSION PUMP AT A SPEED OF
     Route: 042
     Dates: start: 20231222, end: 20231222

REACTIONS (4)
  - Malaise [Recovered/Resolved]
  - Abdominal pain [Recovered/Resolved]
  - Pallor [Recovered/Resolved]
  - Hypotension [Recovered/Resolved]

NARRATIVE: CASE EVENT DATE: 20231222
